FAERS Safety Report 7711501-2 (Version None)
Quarter: 2011Q3

REPORT INFORMATION
  Report Type: 
  Country: None (occurrence: None)
  Receive Date: 20110826
  Receipt Date: 20110822
  Transmission Date: 20111222
  Serious: Yes (Hospitalization)
  Sender: FDA-Public Use
  Company Number: US-ABBOTT-11P-163-0848224-00

PATIENT
  Sex: Female
  Weight: 46.762 kg

DRUGS (5)
  1. DONNATOL [Concomitant]
     Indication: IRRITABLE BOWEL SYNDROME
  2. HUMIRA [Suspect]
     Indication: PSORIATIC ARTHROPATHY
     Dates: start: 20110601
  3. VEMOVO [Concomitant]
     Indication: INFLAMMATION
  4. GABAPENTIN [Concomitant]
     Indication: NEUROPATHY PERIPHERAL
  5. FIORICET [Concomitant]
     Indication: PAIN

REACTIONS (1)
  - PNEUMOTHORAX [None]
